FAERS Safety Report 16873725 (Version 1)
Quarter: 2019Q4

REPORT INFORMATION
  Report Type: Report from Study
  Country: CG (occurrence: CG)
  Receive Date: 20191001
  Receipt Date: 20191001
  Transmission Date: 20200122
  Serious: Yes (Other)
  Sender: FDA-Public Use
  Company Number: CG-PFIZER INC-2019412635

PATIENT

DRUGS (3)
  1. ARTESUNATE + AMODIAQUINE [Concomitant]
     Indication: MALARIA
     Dosage: UNK UNK, 1X/DAY
  2. CLINDAMYCIN PALMITATE HCL [Suspect]
     Active Substance: CLINDAMYCIN PALMITATE HYDROCHLORIDE
     Indication: MALARIA
     Dosage: 10 MG/KG, 2X/DAY
     Route: 048
  3. QUININE [Suspect]
     Active Substance: QUININE
     Indication: MALARIA
     Dosage: UNK, 3X/DAY (THRICE DAILY FOR 7 DAYS)
     Route: 048

REACTIONS (1)
  - Seizure [Unknown]
